FAERS Safety Report 9831542 (Version 1)
Quarter: 2014Q1

REPORT INFORMATION
  Report Type: Spontaneous
  Country: US (occurrence: US)
  Receive Date: 20140121
  Receipt Date: 20140121
  Transmission Date: 20141002
  Serious: Yes (Hospitalization)
  Sender: FDA-Public Use
  Company Number: US-BAYER-2014-009689

PATIENT
  Age: 30 Year
  Sex: Female

DRUGS (6)
  1. YAZ [Suspect]
     Indication: CONTRACEPTION
  2. DARVOCET [Concomitant]
     Indication: PAIN
     Dosage: 100-650 MG, 1 OR 2 TABLETS EVERY 6 HOURS AS NEEDED
     Route: 048
  3. MULTIVITAMINS [Concomitant]
     Dosage: UNK, DAILY
  4. FLEXERIL [Concomitant]
     Indication: PAIN
  5. CYCLOBENZAPRINE [Concomitant]
  6. OXYCONTIN [Concomitant]

REACTIONS (1)
  - Deep vein thrombosis [Recovered/Resolved]
